FAERS Safety Report 10563685 (Version 3)
Quarter: 2015Q2

REPORT INFORMATION
  Report Type: Report from Study
  Country: JP (occurrence: JP)
  Receive Date: 20141104
  Receipt Date: 20150519
  Transmission Date: 20150821
  Serious: Yes (Hospitalization)
  Sender: FDA-Public Use
  Company Number: JP-BAYER-2014-158276

PATIENT
  Age: 56 Year
  Sex: Female

DRUGS (22)
  1. HALOSTEN [Concomitant]
     Active Substance: HALOPERIDOL
     Route: 048
  2. RISPERDAL [Concomitant]
     Active Substance: RISPERIDONE
  3. ALFAROL [Concomitant]
     Active Substance: ALFACALCIDOL
     Route: 048
  4. ULCERLMIN [Concomitant]
     Active Substance: SUCRALFATE
     Route: 048
  5. MYSER [Concomitant]
     Active Substance: DIFLUPREDNATE
     Route: 061
  6. NEXAVAR [Suspect]
     Active Substance: SORAFENIB
     Indication: THYROID CANCER
     Dosage: 400 MG, BID
     Route: 048
     Dates: start: 20140909, end: 20140923
  7. LOPEMIN [Concomitant]
     Active Substance: LOPERAMIDE HYDROCHLORIDE
     Route: 048
  8. NEXAVAR [Suspect]
     Active Substance: SORAFENIB
     Indication: THYROID CANCER
     Dosage: 400 MG, BID
     Route: 048
     Dates: start: 20140908
  9. LODOPIN [Suspect]
     Active Substance: ZOTEPINE
     Route: 048
  10. DOGMATYL [Concomitant]
     Active Substance: SULPIRIDE
     Route: 048
  11. GASMOTIN [Concomitant]
     Active Substance: MOSAPRIDE CITRATE
     Route: 048
  12. NASONEX [Concomitant]
     Active Substance: MOMETASONE FUROATE
     Route: 045
  13. THYRADIN [Concomitant]
     Active Substance: LEVOTHYROXINE
     Route: 048
  14. MAGNESIUM OXIDE. [Concomitant]
     Active Substance: MAGNESIUM OXIDE
     Route: 048
  15. WYPAX [Concomitant]
     Active Substance: LORAZEPAM
     Route: 048
  16. HIRUDOID [Concomitant]
     Active Substance: GLYCOSAMINOGLYCANS
  17. VEGETAMIN [Concomitant]
     Active Substance: CHLORPROMAZINE HYDROCHLORIDE\PHENOBARBITAL\PROMETHAZINE HYDROCHLORIDE
     Route: 048
  18. PURSENNID [Concomitant]
     Active Substance: SENNOSIDES A AND B
     Route: 048
  19. AMOBAN [Concomitant]
     Active Substance: ZOPICLONE
     Route: 048
  20. ZYPREXA [Concomitant]
     Active Substance: OLANZAPINE
  21. KERATINAMIN [Concomitant]
     Active Substance: UREA
     Route: 061
  22. COLONEL [Concomitant]
     Active Substance: CALCIUM POLYCARBOPHIL
     Route: 048

REACTIONS (5)
  - Posterior reversible encephalopathy syndrome [Recovered/Resolved with Sequelae]
  - Haematemesis [Unknown]
  - Palmar-plantar erythrodysaesthesia syndrome [Recovered/Resolved]
  - Seizure [None]
  - Altered state of consciousness [Recovered/Resolved]

NARRATIVE: CASE EVENT DATE: 20140916
